FAERS Safety Report 15133941 (Version 2)
Quarter: 2018Q4

REPORT INFORMATION
  Report Type: Spontaneous
  Country: DE (occurrence: DE)
  Receive Date: 20180712
  Receipt Date: 20181031
  Transmission Date: 20190204
  Serious: Yes (Hospitalization, Other)
  Sender: FDA-Public Use
  Company Number: DE-WEST-WARD PHARMACEUTICALS CORP.-DE-H14001-18-05618

PATIENT
  Age: 48 Year
  Sex: Male

DRUGS (8)
  1. LEVETIRACETAM UCB [Suspect]
     Active Substance: LEVETIRACETAM
     Dosage: INCREASED UP TO 1750 MG TWICE DAILY (2)
  2. LEVETIRACETAM UCB [Suspect]
     Active Substance: LEVETIRACETAM
     Route: 065
  3. VIMPAT [Suspect]
     Active Substance: LACOSAMIDE
     Indication: SEIZURE
     Route: 065
  4. BRIVIACT [Suspect]
     Active Substance: BRIVARACETAM
     Indication: PRODUCT USED FOR UNKNOWN INDICATION
     Route: 065
  5. LEVETIRACETAM. [Suspect]
     Active Substance: LEVETIRACETAM
     Indication: SEIZURE
     Route: 065
  6. FAUSTAN [Concomitant]
     Active Substance: DIAZEPAM
     Indication: AGITATION
     Dosage: 10 MG, AS NEEDED (PRN) ; AS NECESSARY
     Route: 065
  7. VIMPAT [Suspect]
     Active Substance: LACOSAMIDE
     Route: 065
  8. LEVETIRACETAM UCB [Suspect]
     Active Substance: LEVETIRACETAM
     Indication: SEIZURE
     Route: 065

REACTIONS (11)
  - Seizure [Unknown]
  - Aura [Unknown]
  - Feeling abnormal [Unknown]
  - Dizziness [Unknown]
  - Nightmare [Unknown]
  - Palpitations [Unknown]
  - Petit mal epilepsy [Unknown]
  - Blood pressure increased [Unknown]
  - Off label use [Unknown]
  - Malaise [Unknown]
  - Overdose [Unknown]

NARRATIVE: CASE EVENT DATE: 2015
